FAERS Safety Report 18764192 (Version 3)
Quarter: 2021Q1

REPORT INFORMATION
  Report Type: Report from Study
  Country: US (occurrence: US)
  Receive Date: 20210120
  Receipt Date: 20210130
  Transmission Date: 20210419
  Serious: Yes (Hospitalization, Other)
  Sender: FDA-Public Use
  Company Number: US-TAKEDA-US202028980

PATIENT
  Sex: Female

DRUGS (3)
  1. HUMAN NORMAL IMMUNOGLOBULIN; LIQUID [Suspect]
     Active Substance: HUMAN IMMUNOGLOBULIN G
     Indication: URTICARIA
  2. HUMAN NORMAL IMMUNOGLOBULIN; LIQUID [Suspect]
     Active Substance: HUMAN IMMUNOGLOBULIN G
     Indication: PRIMARY IMMUNODEFICIENCY SYNDROME
  3. HUMAN NORMAL IMMUNOGLOBULIN; LIQUID [Suspect]
     Active Substance: HUMAN IMMUNOGLOBULIN G
     Indication: SELECTIVE IGG SUBCLASS DEFICIENCY
     Route: 042

REACTIONS (13)
  - Autoimmune disorder [Unknown]
  - Panic attack [Unknown]
  - Vitiligo [Unknown]
  - Blood pressure increased [Unknown]
  - Immunoglobulins increased [Unknown]
  - Therapy change [Unknown]
  - Lymphadenopathy [Unknown]
  - Skin disorder [Unknown]
  - Thyroid disorder [Unknown]
  - Anxiety [Unknown]
  - Blood immunoglobulin A decreased [Unknown]
  - Pain [Unknown]
  - Urticaria [Unknown]
